FAERS Safety Report 16754883 (Version 1)
Quarter: 2019Q4

REPORT INFORMATION
  Report Type: Spontaneous
  Country: US (occurrence: US)
  Receive Date: 20190828
  Receipt Date: 20190828
  Transmission Date: 20200122
  Serious: Yes (Disabling)
  Sender: FDA-Public Use
  Company Number: None

PATIENT
  Age: 43 Year
  Sex: Female
  Weight: 65.25 kg

DRUGS (5)
  1. RISATRIPTAN [Concomitant]
  2. EMGALITY [Concomitant]
     Active Substance: GALCANEZUMAB-GNLM
  3. AIMOVIG [Suspect]
     Active Substance: ERENUMAB-AOOE
     Indication: MIGRAINE
     Dosage: ?          QUANTITY:1 INJECTION(S);OTHER FREQUENCY:1 TIME PER MONTH;?
     Route: 058
     Dates: start: 20190112, end: 20190420
  4. NARATRIPTAN [Concomitant]
     Active Substance: NARATRIPTAN HYDROCHLORIDE
  5. IBUPROFEN. [Concomitant]
     Active Substance: IBUPROFEN

REACTIONS (10)
  - Vomiting [None]
  - Dehydration [None]
  - Tooth discolouration [None]
  - Postural orthostatic tachycardia syndrome [None]
  - Nausea [None]
  - Constipation [None]
  - Weight decreased [None]
  - Diarrhoea [None]
  - Muscle spasms [None]
  - Nail disorder [None]

NARRATIVE: CASE EVENT DATE: 20190401
